FAERS Safety Report 6335270-6 (Version None)
Quarter: 2009Q3

REPORT INFORMATION
  Report Type: 
  Country: None (occurrence: None)
  Receive Date: 20090831
  Receipt Date: 20090821
  Transmission Date: 20100115
  Serious: Yes (Death, Hospitalization)
  Sender: FDA-Public Use
  Company Number: GB-MERCK-0811USA03564

PATIENT
  Age: 73 Year
  Sex: Male
  Weight: 100 kg

DRUGS (10)
  1. PRINIVIL [Suspect]
     Indication: HYPERTENSION
     Route: 048
     Dates: start: 20060313, end: 20081028
  2. ATORVASTATIN [Suspect]
     Indication: HYPERCHOLESTEROLAEMIA
     Route: 065
     Dates: start: 20061220
  3. BENDROFLUMETHIAZIDE [Suspect]
     Indication: HYPERTENSION
     Route: 048
     Dates: start: 20030214, end: 20081028
  4. ADIZEM [Concomitant]
     Indication: ANGINA PECTORIS
     Route: 048
     Dates: start: 20061116
  5. ADIZEM [Concomitant]
     Indication: HYPERTENSION
     Route: 048
     Dates: start: 20061116
  6. ASPIRIN [Concomitant]
     Indication: PROPHYLAXIS
     Route: 048
     Dates: start: 20050603
  7. NITROGLYCERIN [Concomitant]
     Indication: ANGINA PECTORIS
     Route: 065
     Dates: start: 20040505
  8. METFORMIN HYDROCHLORIDE [Concomitant]
     Indication: DIABETES MELLITUS
     Route: 048
     Dates: start: 20070420
  9. NICORANDIL [Concomitant]
     Route: 065
     Dates: start: 20070124
  10. SOLIFENACIN SUCCINATE [Concomitant]
     Indication: POLLAKIURIA
     Route: 048
     Dates: start: 20080716

REACTIONS (2)
  - MULTI-ORGAN FAILURE [None]
  - PANCREATITIS ACUTE [None]
